FAERS Safety Report 7460408-7 (Version None)
Quarter: 2011Q2

REPORT INFORMATION
  Report Type: 
  Country: None (occurrence: None)
  Receive Date: 20110505
  Receipt Date: 20110427
  Transmission Date: 20111010
  Serious: Yes (Death)
  Sender: FDA-Public Use
  Company Number: B0597384A

PATIENT
  Sex: Female

DRUGS (18)
  1. FUROSEMIDE [Concomitant]
     Dosage: 20MG PER DAY
     Route: 048
  2. BISOPROLOL FUMARATE [Concomitant]
     Dosage: 5MG PER DAY
     Route: 065
     Dates: start: 20071211
  3. ROPINIROLE HYDROCHLORIDE [Suspect]
     Indication: PARKINSON'S DISEASE
     Dosage: 9MG PER DAY
     Route: 048
     Dates: start: 20070918
  4. SINEMET [Concomitant]
     Dosage: 250MCG PER DAY
     Route: 048
     Dates: start: 20020430
  5. RISPERDAL [Suspect]
     Indication: PARKINSON'S DISEASE
     Dosage: 9MG PER DAY
     Route: 065
  6. ROPINIROLE [Suspect]
     Indication: PARKINSON'S DISEASE
     Dosage: 3MG PER DAY
  7. ASPIRIN [Concomitant]
     Dosage: 75MG PER DAY
     Route: 048
     Dates: start: 20070918
  8. DIGOXIN [Concomitant]
     Dosage: 62.5MCG PER DAY
     Route: 048
     Dates: start: 20070918
  9. LACTULOSE [Concomitant]
     Dosage: 10ML TWICE PER DAY
     Route: 048
     Dates: start: 20070918
  10. AMOXIDAL [Concomitant]
     Dosage: 250MG THREE TIMES PER DAY
  11. CARBIMAZOLE [Concomitant]
     Dosage: 5MG PER DAY
     Route: 048
     Dates: start: 20060630
  12. SINEMET CR [Concomitant]
     Route: 048
     Dates: start: 20020719
  13. IRON [Concomitant]
     Route: 048
     Dates: start: 20060927
  14. SPARTEINE SULPHATE [Concomitant]
     Route: 048
  15. LEVODOPA [Concomitant]
     Indication: PARKINSON'S DISEASE
     Route: 065
  16. SINEMET [Concomitant]
     Dates: start: 20011022
  17. CARBIDOPA [Concomitant]
     Indication: PARKINSON'S DISEASE
     Route: 065
  18. FORTISIP [Concomitant]
     Route: 048
     Dates: start: 20070918

REACTIONS (4)
  - DEATH [None]
  - OFF LABEL USE [None]
  - MEDICATION ERROR [None]
  - WRONG DRUG ADMINISTERED [None]
